FAERS Safety Report 12771876 (Version 1)
Quarter: 2016Q3

REPORT INFORMATION
  Report Type: Spontaneous
  Country: None (occurrence: US)
  Receive Date: 20160922
  Receipt Date: 20160922
  Transmission Date: 20161109
  Serious: No
  Sender: FDA-Public Use
  Company Number: US-MEDAC PHARMA, INC.-1057579

PATIENT
  Age: 68 Year
  Sex: Female
  Weight: 104.55 kg

DRUGS (1)
  1. RASUVO [Suspect]
     Active Substance: METHOTREXATE SODIUM
     Indication: RHEUMATOID ARTHRITIS
     Dates: start: 201607, end: 20160803

REACTIONS (5)
  - Abdominal pain upper [Recovering/Resolving]
  - Hypophagia [Recovering/Resolving]
  - Gastritis [Recovering/Resolving]
  - Patient dissatisfaction with treatment [Unknown]
  - Fungal infection [Unknown]

NARRATIVE: CASE EVENT DATE: 201607
